FAERS Safety Report 19151053 (Version 1)
Quarter: 2021Q2

REPORT INFORMATION
  Report Type: Spontaneous
  Country: CA (occurrence: CA)
  Receive Date: 20210419
  Receipt Date: 20210419
  Transmission Date: 20210717
  Serious: Yes (Other)
  Sender: FDA-Public Use
  Company Number: CA-TEVA-2021-CA-1900714

PATIENT
  Age: 74 Year
  Sex: Female

DRUGS (1)
  1. TEVA LOSARTAN [Suspect]
     Active Substance: LOSARTAN

REACTIONS (1)
  - Internal haemorrhage [Unknown]
